FAERS Safety Report 12700691 (Version 1)
Quarter: 2016Q3

REPORT INFORMATION
  Report Type: Spontaneous
  Country: US (occurrence: US)
  Receive Date: 20160830
  Receipt Date: 20160830
  Transmission Date: 20161109
  Serious: No
  Sender: FDA-Public Use
  Company Number: US-SA-2016SA107641

PATIENT
  Age: 90 Year
  Sex: Female

DRUGS (5)
  1. CARVEDILOL. [Concomitant]
     Active Substance: CARVEDILOL
  2. WARFARIN [Concomitant]
     Active Substance: WARFARIN
     Dosage: 3.5 BY MOUTH MON-THURSDAY AND REST OF THE WEEK 5.0
     Route: 048
  3. ATORVASTATIN [Concomitant]
     Active Substance: ATORVASTATIN
     Dosage: 1 TABLET 3XWEEK
  4. MULTAQ [Suspect]
     Active Substance: DRONEDARONE
     Indication: PROPHYLAXIS
     Route: 065
  5. ATENOLOL. [Concomitant]
     Active Substance: ATENOLOL
     Indication: ATRIAL FIBRILLATION

REACTIONS (3)
  - Amnesia [Not Recovered/Not Resolved]
  - Heart rate irregular [Unknown]
  - Visual impairment [Not Recovered/Not Resolved]
